FAERS Safety Report 8625439-X (Version None)
Quarter: 2012Q3

REPORT INFORMATION
  Report Type: 
  Country: None (occurrence: None)
  Receive Date: 20120827
  Receipt Date: 20080522
  Transmission Date: 20120928
  Serious: Yes (Other)
  Sender: FDA-Public Use
  Company Number: CO-PFIZER INC-2012205411

PATIENT
  Age: 66 Year
  Sex: Male

DRUGS (5)
  1. OLMESARTAN MEDOXOMIL AND HYDROCHLOROTHIZIDE [Suspect]
     Indication: HYPERTENSION
     Dosage: [OLMESARTAN MEDOXOMIL 20 MG]/ [HYDROCHLOROTHIAZIDE 12.5 MG], 1X/DAY
  2. OMEPRAZOLE [Concomitant]
     Dosage: 20 MG, 1X/DAY
  3. LIPITOR [Suspect]
     Indication: DYSLIPIDAEMIA
     Dosage: 10 MG, 1X/DAY
  4. VERAPAMIL HYDROCHLORIDE [Concomitant]
     Dosage: 120 MG, 1X/DAY
  5. PHENOBARBITAL TAB [Concomitant]
     Dosage: 100 MG, 1X/DAY

REACTIONS (2)
  - RENAL FAILURE CHRONIC [None]
  - HAEMATURIA [None]
